FAERS Safety Report 8395701-7 (Version None)
Quarter: 2012Q2

REPORT INFORMATION
  Report Type: 
  Country: None (occurrence: None)
  Receive Date: 20120530
  Receipt Date: 20120319
  Transmission Date: 20120825
  Serious: No
  Sender: FDA-Public Use
  Company Number: US-GLAXOSMITHKLINE-A0970357A

PATIENT
  Age: 76 Year
  Sex: Female

DRUGS (5)
  1. SINGULAIR [Concomitant]
  2. VENTOLIN [Suspect]
     Indication: DYSPNOEA
     Route: 055
     Dates: start: 20100101
  3. SPIRIVA [Concomitant]
  4. PROVENTIL [Concomitant]
  5. PREDNISONE TAB [Concomitant]

REACTIONS (2)
  - DRUG EFFECT DECREASED [None]
  - DYSPNOEA [None]
